FAERS Safety Report 4285774-5 (Version None)
Quarter: 2004Q1

REPORT INFORMATION
  Report Type: 
  Country: None (occurrence: None)
  Receive Date: 20040203
  Receipt Date: 20040119
  Transmission Date: 20041129
  Serious: Yes (Death)
  Sender: FDA-Public Use
  Company Number: 2004EU000116

PATIENT
  Age: 54 Year
  Sex: Female

DRUGS (3)
  1. FK506(TACROLIMUS) FORMULATION UNKNOWN [Suspect]
     Indication: RENAL TRANSPLANT
  2. CELLCEPT [Concomitant]
  3. MYCOPHENOLATE MOFETIL (MYCOPHENOLATE MOFETIL) [Concomitant]

REACTIONS (4)
  - CERVIX CARCINOMA STAGE II [None]
  - DIZZINESS [None]
  - METASTASES TO HEART [None]
  - TACHYCARDIA [None]
